FAERS Safety Report 7146309-2 (Version None)
Quarter: 2010Q4

REPORT INFORMATION
  Report Type: 
  Country: None (occurrence: None)
  Receive Date: 20101208
  Receipt Date: 20101130
  Transmission Date: 20110411
  Serious: Yes (Hospitalization)
  Sender: FDA-Public Use
  Company Number: US-JNJFOC-20101201026

PATIENT
  Sex: Female
  Weight: 74.84 kg

DRUGS (9)
  1. INVEGA [Suspect]
     Indication: PRODUCT USED FOR UNKNOWN INDICATION
     Route: 048
  2. SEROQUEL [Concomitant]
     Indication: ANXIETY
     Route: 048
  3. SEROQUEL [Concomitant]
     Route: 048
  4. SEROQUEL [Concomitant]
     Indication: AFFECTIVE DISORDER
     Route: 048
  5. SEROQUEL [Concomitant]
     Route: 048
  6. NEURONTIN [Concomitant]
     Indication: MUSCLE DISORDER
     Route: 048
  7. ZOLOFT [Concomitant]
     Indication: DEPRESSION
     Route: 048
  8. TRAZODONE [Concomitant]
     Indication: DEPRESSION
  9. TEGRETOL [Concomitant]
     Indication: AFFECTIVE DISORDER
     Route: 048

REACTIONS (9)
  - ABASIA [None]
  - AMNESIA [None]
  - DYSPHAGIA [None]
  - FAECAL INCONTINENCE [None]
  - OEDEMA PERIPHERAL [None]
  - PSYCHOTIC DISORDER [None]
  - RASH GENERALISED [None]
  - URINARY INCONTINENCE [None]
  - VOMITING [None]
